FAERS Safety Report 6928155-5 (Version None)
Quarter: 2010Q3

REPORT INFORMATION
  Report Type: 
  Country: None (occurrence: None)
  Receive Date: 20100812
  Receipt Date: 20100728
  Transmission Date: 20110219
  Serious: Yes (Death, Other)
  Sender: FDA-Public Use
  Company Number: 2010EU003880

PATIENT
  Age: 38 Year
  Sex: Female

DRUGS (4)
  1. TACROLIMUS [Suspect]
     Indication: PYODERMA GANGRENOSUM
  2. CYCLOSPORINE [Suspect]
     Indication: PYODERMA GANGRENOSUM
  3. MYCOPHENOLATE MOFETIL [Suspect]
     Indication: RENAL TRANSPLANT
  4. PREDNISONE [Suspect]
     Indication: RENAL TRANSPLANT

REACTIONS (8)
  - BACTERIAL INFECTION [None]
  - CEREBRAL HAEMORRHAGE [None]
  - CHRONIC ALLOGRAFT NEPHROPATHY [None]
  - NEPHROPATHY TOXIC [None]
  - OFF LABEL USE [None]
  - PLATELET COUNT DECREASED [None]
  - SECONDARY AMYLOIDOSIS [None]
  - TRANSPLANT FAILURE [None]
